FAERS Safety Report 6863964-2 (Version None)
Quarter: 2010Q3

REPORT INFORMATION
  Report Type: 
  Country: None (occurrence: None)
  Receive Date: 20100721
  Receipt Date: 20080618
  Transmission Date: 20110219
  Serious: Yes (Other)
  Sender: FDA-Public Use
  Company Number: US-PFIZER INC-2008021586

PATIENT
  Sex: Female
  Weight: 56.363 kg

DRUGS (7)
  1. CHANTIX [Suspect]
     Indication: EX-TOBACCO USER
     Route: 048
     Dates: start: 20080201, end: 20080327
  2. DILTIAZEM [Concomitant]
  3. BENICAR [Concomitant]
  4. METOPROLOL [Concomitant]
  5. AMBIEN [Concomitant]
  6. SYMBICORT [Concomitant]
  7. ATIVAN [Concomitant]

REACTIONS (10)
  - ABDOMINAL DISCOMFORT [None]
  - ABDOMINAL PAIN [None]
  - BLOOD PRESSURE INCREASED [None]
  - CHANGE OF BOWEL HABIT [None]
  - CONSTIPATION [None]
  - DYSGEUSIA [None]
  - DYSPEPSIA [None]
  - INTENTIONAL DRUG MISUSE [None]
  - NAUSEA [None]
  - VOMITING [None]
